FAERS Safety Report 8583671-8 (Version None)
Quarter: 2012Q3

REPORT INFORMATION
  Report Type: 
  Country: None (occurrence: None)
  Receive Date: 20120809
  Receipt Date: 20120710
  Transmission Date: 20120928
  Serious: Yes (Hospitalization)
  Sender: FDA-Public Use
  Company Number: JP-009507513-1208JPN000385

PATIENT

DRUGS (11)
  1. TELAVIC [Suspect]
     Indication: HEPATITIS C
     Route: 048
     Dates: start: 20120417, end: 20120424
  2. TELAVIC [Suspect]
     Route: 048
     Dates: end: 20120623
  3. REBETOL [Suspect]
     Route: 048
     Dates: start: 20120509, end: 20120623
  4. TELAVIC [Suspect]
     Route: 048
     Dates: start: 20120530
  5. TELAVIC [Suspect]
     Route: 048
     Dates: start: 20120509, end: 20120529
  6. TELAVIC [Suspect]
     Route: 048
     Dates: start: 20120425, end: 20120508
  7. PEG-INTRON [Suspect]
     Dosage: 70MCG
     Route: 058
  8. PEG-INTRON [Suspect]
     Dosage: 1.0MCG/KG/WEEK
     Route: 058
     Dates: start: 20120523
  9. REBETOL [Suspect]
     Indication: HEPATITIS C
     Route: 048
     Dates: start: 20120417, end: 20120508
  10. PEG-INTRON [Suspect]
     Indication: HEPATITIS C
     Dosage: 1.0MCG/KG/WEEK
     Route: 058
     Dates: start: 20120417, end: 20120522
  11. CALBLOCK [Concomitant]
     Indication: HYPERTENSION
     Route: 048

REACTIONS (1)
  - HYPOKALAEMIA [None]
